FAERS Safety Report 14696225 (Version 1)
Quarter: 2018Q1

REPORT INFORMATION
  Report Type: Spontaneous
  Country: US (occurrence: US)
  Receive Date: 20180329
  Receipt Date: 20180329
  Transmission Date: 20180509
  Serious: No
  Sender: FDA-Public Use
  Company Number: US-SUNOVION-2018SUN001148

PATIENT
  Age: 55 Year
  Sex: Female

DRUGS (1)
  1. UTIBRON NEOHALER [Suspect]
     Active Substance: GLYCOPYRROLATE\INDACATEROL MALEATE
     Dosage: UNK
     Route: 055

REACTIONS (4)
  - Vision blurred [Recovered/Resolved]
  - Dysphagia [Recovered/Resolved]
  - Visual impairment [Recovered/Resolved]
  - Choking sensation [Recovered/Resolved]
